FAERS Safety Report 12161411 (Version 1)
Quarter: 2016Q1

REPORT INFORMATION
  Report Type: Report from Study
  Country: US (occurrence: US)
  Receive Date: 20160308
  Receipt Date: 20160308
  Transmission Date: 20160526
  Serious: No
  Sender: FDA-Public Use
  Company Number: US-AMGEN-USASL2016023890

PATIENT
  Age: 64 Year
  Sex: Female

DRUGS (1)
  1. ENBREL [Suspect]
     Active Substance: ETANERCEPT
     Indication: PSORIATIC ARTHROPATHY
     Dosage: 50 MG, QWK
     Route: 065
     Dates: start: 201509

REACTIONS (21)
  - Joint crepitation [Unknown]
  - Constipation [Unknown]
  - Myalgia [Unknown]
  - Pain [Unknown]
  - Fatigue [Unknown]
  - Flushing [Unknown]
  - Hyperhidrosis [Unknown]
  - Abdominal pain upper [Unknown]
  - Accommodation disorder [Unknown]
  - Weight decreased [Unknown]
  - Finger deformity [Unknown]
  - Vision blurred [Unknown]
  - Arthritis [Unknown]
  - Feeling of body temperature change [Unknown]
  - Joint dislocation [Unknown]
  - Vaginal haemorrhage [Unknown]
  - Drug effect incomplete [Unknown]
  - Arthralgia [Unknown]
  - Arthropathy [Unknown]
  - Feeling abnormal [Unknown]
  - Sciatica [Unknown]

NARRATIVE: CASE EVENT DATE: 201509
